FAERS Safety Report 24113039 (Version 1)
Quarter: 2024Q3

REPORT INFORMATION
  Report Type: Spontaneous
  Country: US (occurrence: US)
  Receive Date: 20240719
  Receipt Date: 20240719
  Transmission Date: 20241017
  Serious: Yes (Other)
  Sender: STEMLINE THERAPEUTICS
  Company Number: US-Stemline Therapeutics, Inc.-2024ST004347

PATIENT
  Age: 63 Year
  Sex: Female

DRUGS (1)
  1. ORSERDU [Suspect]
     Active Substance: ELACESTRANT
     Indication: Product used for unknown indication
     Route: 048
     Dates: start: 20240628

REACTIONS (6)
  - Hydrosalpinx [Unknown]
  - Haemorrhage [Unknown]
  - Somnolence [Unknown]
  - Nausea [Unknown]
  - Abdominal pain lower [Unknown]
  - Vomiting [Unknown]
